FAERS Safety Report 4949940-5 (Version None)
Quarter: 2006Q1

REPORT INFORMATION
  Report Type: 
  Country: None (occurrence: None)
  Receive Date: 20060127
  Receipt Date: 20050407
  Transmission Date: 20060701
  Serious: Yes (Other)
  Sender: FDA-Public Use
  Company Number: 05-04-0563

PATIENT
  Age: 54 Year
  Sex: Female

DRUGS (1)
  1. CLOZAPINE [Suspect]
     Dosage: 100-400MG QD, ORAL
     Route: 048
     Dates: start: 20001201, end: 20050301

REACTIONS (1)
  - DIABETES MELLITUS [None]
